FAERS Safety Report 4674619-7 (Version None)
Quarter: 2005Q2

REPORT INFORMATION
  Report Type: 
  Country: None (occurrence: None)
  Receive Date: 20050526
  Receipt Date: 20050517
  Transmission Date: 20051028
  Serious: Yes (Death)
  Sender: FDA-Public Use
  Company Number: GB-GLAXOSMITHKLINE-B0381970A

PATIENT
  Age: 80 Year
  Sex: Female

DRUGS (11)
  1. PARACETAMOL [Suspect]
     Dosage: 1000MG FOUR TIMES PER DAY
     Route: 048
  2. SPIRIVA [Suspect]
     Indication: CHRONIC OBSTRUCTIVE PULMONARY DISEASE
     Dosage: 18MCG PER DAY
     Route: 055
  3. DEXAMETHASONE [Suspect]
     Dosage: 4MG PER DAY
     Route: 048
  4. LACTULOSE SOLUTION [Suspect]
     Dosage: 20ML TWICE PER DAY
     Route: 065
  5. LANSOPRAZOLE [Suspect]
     Dosage: 15MG PER DAY
     Route: 048
  6. QUININE SULPHATE [Suspect]
     Dosage: 300MG PER DAY
     Route: 048
  7. SALBUTAMOL [Suspect]
     Dosage: 2PUFF AS REQUIRED
     Route: 055
  8. SENNA [Suspect]
     Dosage: 15MG AT NIGHT
     Route: 048
  9. SERETIDE [Suspect]
     Dosage: 2PUFF TWICE PER DAY
     Route: 055
  10. SALBUTAMOL NEBULISER SOL [Concomitant]
     Route: 055
  11. AQUEOUS CREAM [Concomitant]
     Route: 065

REACTIONS (1)
  - NON-HODGKIN'S LYMPHOMA [None]
